FAERS Safety Report 9358231 (Version 2)
Quarter: 2013Q2

REPORT INFORMATION
  Report Type: Spontaneous
  Country: US (occurrence: US)
  Receive Date: 20130620
  Receipt Date: 20130620
  Transmission Date: 20140414
  Serious: No
  Sender: FDA-Public Use
  Company Number: US-GALDERMA-US-GDP-12414821

PATIENT
  Sex: Female

DRUGS (1)
  1. ADAPALENE (ADAPALENE) CREAM, 0.1% [Suspect]
     Indication: PRODUCT USED FOR UNKNOWN INDICATION
     Route: 061

REACTIONS (1)
  - Headache [Unknown]
